FAERS Safety Report 20579182 (Version 1)
Quarter: 2022Q1

REPORT INFORMATION
  Report Type: Spontaneous
  Country: CA (occurrence: CA)
  Receive Date: 20220310
  Receipt Date: 20220310
  Transmission Date: 20220424
  Serious: Yes (Other)
  Sender: FDA-Public Use
  Company Number: CA-NOVARTISPH-NVSC2022CA052991

PATIENT
  Sex: Male

DRUGS (4)
  1. CYCLOSPORINE [Suspect]
     Active Substance: CYCLOSPORINE
     Indication: Behcet^s syndrome
     Dosage: UNK (STARTED AROUND 2002)
     Route: 065
     Dates: start: 2002
  2. METHOTREXATE [Suspect]
     Active Substance: METHOTREXATE
     Indication: Behcet^s syndrome
     Dosage: 1 DOSAGE FORM (DISCONTINUED BEFORE 2002)
     Route: 065
  3. PREDNISONE [Suspect]
     Active Substance: PREDNISONE
     Indication: Behcet^s syndrome
     Dosage: UNK
     Route: 048
  4. MERCAPTOPURINE [Concomitant]
     Active Substance: MERCAPTOPURINE
     Indication: Autoimmune disorder
     Dosage: 25 MG, QD
     Route: 048

REACTIONS (4)
  - Uveitis [Unknown]
  - Blindness [Unknown]
  - Off label use [Not Recovered/Not Resolved]
  - Treatment failure [Unknown]
